FAERS Safety Report 4870817-8 (Version None)
Quarter: 2006Q1

REPORT INFORMATION
  Report Type: 
  Country: None (occurrence: None)
  Receive Date: 20060103
  Receipt Date: 20051221
  Transmission Date: 20060701
  Serious: Yes (Death, Hospitalization, Disabling)
  Sender: FDA-Public Use
  Company Number: US-MERCK-0512USA03741

PATIENT
  Age: 68 Year
  Sex: Female
  Weight: 50 kg

DRUGS (5)
  1. VIOXX [Suspect]
     Indication: ARTHRITIS
     Route: 048
     Dates: start: 20010401, end: 20010706
  2. PREDNISONE [Concomitant]
     Indication: ARTHRITIS
     Route: 065
  3. ARAVA [Concomitant]
     Indication: ARTHRITIS
     Route: 065
  4. MEDROL [Concomitant]
     Indication: ARTHRITIS
     Route: 065
  5. CIPRO [Concomitant]
     Indication: UPPER RESPIRATORY TRACT INFECTION
     Route: 065

REACTIONS (5)
  - BLOOD GLUCOSE ABNORMAL [None]
  - CEREBROVASCULAR ACCIDENT [None]
  - DEATH [None]
  - DIABETES MELLITUS [None]
  - HIP FRACTURE [None]
